FAERS Safety Report 5515108-7 (Version None)
Quarter: 2007Q4

REPORT INFORMATION
  Report Type: 
  Country: None (occurrence: None)
  Receive Date: 20071113
  Receipt Date: 20070123
  Transmission Date: 20080405
  Serious: No
  Sender: FDA-Public Use
  Company Number: A0634562A

PATIENT
  Age: 65 Year
  Sex: Male
  Weight: 81.8 kg

DRUGS (1)
  1. COREG [Suspect]
     Dates: start: 20060601

REACTIONS (2)
  - MOOD SWINGS [None]
  - VERBAL ABUSE [None]
